FAERS Safety Report 7251086-0 (Version None)
Quarter: 2011Q1

REPORT INFORMATION
  Report Type: 
  Country: None (occurrence: None)
  Receive Date: 20110128
  Receipt Date: 20110118
  Transmission Date: 20110831
  Serious: Yes (Other)
  Sender: FDA-Public Use
  Company Number: JP-MERCK-1101USA02067

PATIENT
  Age: 40 Year
  Sex: Male

DRUGS (5)
  1. ZIAGEN [Concomitant]
     Indication: HIV INFECTION
     Route: 048
  2. EPIVIR [Concomitant]
     Indication: HIV INFECTION
     Route: 048
  3. FLUCONAZOLE [Concomitant]
     Indication: CANDIDIASIS
     Route: 065
  4. ISENTRESS [Suspect]
     Indication: HIV INFECTION
     Route: 048
  5. FUNGUARD [Concomitant]
     Indication: CANDIDIASIS
     Route: 042

REACTIONS (6)
  - CANDIDA ENDOPHTHALMITIS [None]
  - CANDIDIASIS [None]
  - RETINAL DETACHMENT [None]
  - IMMUNE RECONSTITUTION SYNDROME [None]
  - PYREXIA [None]
  - RENAL IMPAIRMENT [None]
